FAERS Safety Report 15251140 (Version 2)
Quarter: 2020Q2

REPORT INFORMATION
  Report Type: Spontaneous
  Country: US (occurrence: US)
  Receive Date: 20180807
  Receipt Date: 20200624
  Transmission Date: 20200713
  Serious: Yes (Other)
  Sender: FDA-Public Use
  Company Number: US-BRISTOL-MYERS SQUIBB COMPANY-BMS-2018-071670

PATIENT
  Sex: Female

DRUGS (1)
  1. OPDIVO [Suspect]
     Active Substance: NIVOLUMAB
     Indication: BREAST CANCER STAGE IV
     Dosage: UNAVAILABLE
     Route: 065

REACTIONS (5)
  - Joint swelling [Unknown]
  - Scleroderma [Unknown]
  - Intentional product use issue [Unknown]
  - Skin tightness [Unknown]
  - Skin atrophy [Unknown]
